FAERS Safety Report 7308597-9 (Version None)
Quarter: 2011Q1

REPORT INFORMATION
  Report Type: 
  Country: None (occurrence: None)
  Receive Date: 20110223
  Receipt Date: 20101221
  Transmission Date: 20110831
  Serious: No
  Sender: FDA-Public Use
  Company Number: US-BAYER-2011-011021

PATIENT
  Sex: Male
  Weight: 81 kg

DRUGS (2)
  1. ALEVE (CAPLET) [Suspect]
     Indication: MYALGIA
     Dosage: UNK
     Route: 048
     Dates: start: 20100101
  2. GLIPIZIDE [Concomitant]

REACTIONS (2)
  - RASH MACULAR [None]
  - PRURITUS [None]
